FAERS Safety Report 13340040 (Version 1)
Quarter: 2017Q1

REPORT INFORMATION
  Report Type: Spontaneous
  Country: DK (occurrence: DK)
  Receive Date: 20170316
  Receipt Date: 20170316
  Transmission Date: 20170428
  Serious: Yes (Disabling)
  Sender: FDA-Public Use
  Company Number: DK-ROCHE-1906755

PATIENT
  Age: 87 Year
  Sex: Female
  Weight: 70 kg

DRUGS (2)
  1. ATORVASTATIN [Concomitant]
     Active Substance: ATORVASTATIN
     Indication: HYPERCHOLESTEROLAEMIA
  2. ACTILYSE [Suspect]
     Active Substance: ALTEPLASE
     Indication: ISCHAEMIC STROKE
     Dosage: ONE-TIME INJECTION
     Route: 042
     Dates: start: 20170222, end: 20170222

REACTIONS (2)
  - Cerebral haemorrhage [Not Recovered/Not Resolved]
  - Quadrantanopia [Not Recovered/Not Resolved]

NARRATIVE: CASE EVENT DATE: 20170222
